FAERS Safety Report 9732678 (Version 3)
Quarter: 2013Q4

REPORT INFORMATION
  Report Type: Spontaneous
  Country: US (occurrence: US)
  Receive Date: 20131205
  Receipt Date: 20131226
  Transmission Date: 20140711
  Serious: Yes (Hospitalization, Other)
  Sender: FDA-Public Use
  Company Number: US-UCBSA-100053

PATIENT
  Age: 58 Year
  Sex: Female
  Weight: 83.63 kg

DRUGS (12)
  1. KEPPRA XR [Suspect]
     Indication: CONVULSION
     Dosage: UNKNOWN
     Dates: start: 2008
  2. KEPPRA XR [Suspect]
     Indication: CONVULSION
     Dosage: STRENGTH: 750 MG. LOT 987641. EXP DTAE:30-SEP-2014.
  3. ACETYL SALICYLIC ACID [Concomitant]
     Indication: HEADACHE
     Dosage: 325 ONCE IN A DAY
  4. TRIAMCINDON [Concomitant]
     Indication: ECZEMA
     Dosage: 0.1 % CREAM
     Dates: start: 2011
  5. METFORMIN [Concomitant]
     Indication: TYPE 2 DIABETES MELLITUS
     Dosage: DOSE STRENGTH:500 MG
  6. METFORMIN [Concomitant]
     Indication: TYPE 2 DIABETES MELLITUS
     Dosage: DOSE STRENGTH:500 MG
  7. GENERIC PRILOSEC [Concomitant]
     Indication: GASTROOESOPHAGEAL REFLUX DISEASE
     Dosage: 1 QD
  8. FLUTICASONE [Concomitant]
     Indication: SEASONAL ALLERGY
     Dosage: NASAL SPRAY
  9. TRIAZOPONE [Concomitant]
     Indication: INSOMNIA
     Dosage: 50 MG ONCE NIGHTLY
  10. TOPRAL XL [Concomitant]
     Indication: HYPERTENSION
  11. DILANTIN [Concomitant]
     Indication: CONVULSION
     Dates: start: 2007
  12. DILANTIN [Concomitant]
     Indication: CONVULSION
     Dates: start: 201308

REACTIONS (7)
  - Convulsion [Recovered/Resolved]
  - Headache [Recovered/Resolved]
  - Sleep apnoea syndrome [Unknown]
  - Hallucination [Unknown]
  - Stress [Unknown]
  - Eczema [Unknown]
  - Inappropriate schedule of drug administration [Unknown]
